FAERS Safety Report 9416813 (Version 1)
Quarter: 2013Q3

REPORT INFORMATION
  Report Type: Spontaneous
  Country: US (occurrence: US)
  Receive Date: 20130724
  Receipt Date: 20130724
  Transmission Date: 20140515
  Serious: No
  Sender: FDA-Public Use
  Company Number: US-GALDERMA-US13001483

PATIENT
  Sex: Female

DRUGS (12)
  1. ORACEA (DOXYCYCLINE, USP) CAPSULES 40 MG [Suspect]
     Indication: ROSACEA
     Route: 048
     Dates: start: 2011
  2. CLOBEX (CLOBETASOL PROPIONATE) SPRAY, 0.05% [Concomitant]
     Indication: PSORIASIS
     Route: 061
  3. BENICAR [Concomitant]
     Indication: BLOOD PRESSURE MANAGEMENT
     Route: 048
  4. LORAZEPAM [Concomitant]
     Route: 048
  5. PROZAC [Concomitant]
     Indication: ANXIETY
     Route: 048
  6. NEXIUM [Concomitant]
     Indication: GASTROOESOPHAGEAL REFLUX DISEASE
     Route: 048
  7. LEVOTHYROXINE [Concomitant]
     Indication: THYROID DISORDER
     Route: 048
  8. VITAMIN  B 12 [Concomitant]
     Route: 048
  9. VITAMIN  D [Concomitant]
     Route: 048
  10. ASPIRIN [Concomitant]
     Route: 048
  11. PREMARIN [Concomitant]
     Route: 048
  12. FRESH AND CLEAR SHAMPOO [Concomitant]
     Indication: THERAPEUTIC SKIN CARE TOPICAL
     Route: 061

REACTIONS (1)
  - Drug ineffective [Not Recovered/Not Resolved]
